FAERS Safety Report 8093052-1 (Version None)
Quarter: 2012Q1

REPORT INFORMATION
  Report Type: 
  Country: None (occurrence: None)
  Receive Date: 20120128
  Receipt Date: 20111027
  Transmission Date: 20120608
  Serious: No
  Sender: FDA-Public Use
  Company Number: PR-ABBOTT-11P-131-0840290-00

PATIENT
  Sex: Female

DRUGS (4)
  1. HUMIRA [Suspect]
     Indication: PSORIASIS
     Route: 058
     Dates: start: 20100101, end: 20110601
  2. HUMIRA [Suspect]
     Route: 058
     Dates: start: 20110921
  3. ACETAMINOPHEN [Suspect]
     Indication: PRODUCT USED FOR UNKNOWN INDICATION
     Dates: start: 20110601, end: 20110601
  4. PUVA [Concomitant]
     Indication: PSORIASIS

REACTIONS (4)
  - INFLUENZA [None]
  - RASH [None]
  - SWELLING FACE [None]
  - ASTHMA [None]
